FAERS Safety Report 14986150 (Version 5)
Quarter: 2020Q2

REPORT INFORMATION
  Report Type: Report from Study
  Country: US (occurrence: US)
  Receive Date: 20180607
  Receipt Date: 20200521
  Transmission Date: 20200713
  Serious: Yes (Other)
  Sender: FDA-Public Use
  Company Number: PHEH2018US021259

PATIENT
  Age: 25 Year
  Sex: Female
  Weight: 57.59 kg

DRUGS (2)
  1. PRENATAL [Concomitant]
     Active Substance: VITAMINS
     Indication: PRODUCT USED FOR UNKNOWN INDICATION
     Dosage: UNK
     Route: 065
  2. GILENYA [Suspect]
     Active Substance: FINGOLIMOD HYDROCHLORIDE
     Indication: RELAPSING-REMITTING MULTIPLE SCLEROSIS
     Dosage: 0.5 MG, QD
     Route: 048
     Dates: start: 2010, end: 201802

REACTIONS (3)
  - Cephalo-pelvic disproportion [Unknown]
  - Maternal exposure during pregnancy [Unknown]
  - Macrosomia [Unknown]

NARRATIVE: CASE EVENT DATE: 201804
